FAERS Safety Report 5395897-5 (Version None)
Quarter: 2007Q3

REPORT INFORMATION
  Report Type: 
  Country: None (occurrence: None)
  Receive Date: 20070724
  Receipt Date: 20070713
  Transmission Date: 20080115
  Serious: Yes (Other)
  Sender: FDA-Public Use
  Company Number: FR-PFIZER INC-2007045222

PATIENT
  Sex: Male
  Weight: 68 kg

DRUGS (3)
  1. CHAMPIX [Suspect]
     Indication: SMOKING CESSATION THERAPY
  2. MESALAZINE [Concomitant]
     Route: 048
  3. PANTOPRAZOLE SODIUM [Concomitant]

REACTIONS (6)
  - AMNESIA [None]
  - COGNITIVE DISORDER [None]
  - DISTURBANCE IN ATTENTION [None]
  - MEMORY IMPAIRMENT [None]
  - NAUSEA [None]
  - VOMITING [None]
